FAERS Safety Report 23211634 (Version 25)
Quarter: 2024Q2

REPORT INFORMATION
  Report Type: Spontaneous
  Country: GB (occurrence: GB)
  Receive Date: 20231121
  Receipt Date: 20240403
  Transmission Date: 20240716
  Serious: Yes (Hospitalization, Other)
  Sender: FDA-Public Use
  Company Number: GB-JNJFOC-20231149207

PATIENT
  Age: 34 Year
  Sex: Female

DRUGS (211)
  1. REMICADE [Suspect]
     Active Substance: INFLIXIMAB
     Indication: Crohn^s disease
     Dosage: UNK
     Route: 042
  2. REMICADE [Suspect]
     Active Substance: INFLIXIMAB
     Indication: Product used for unknown indication
     Dosage: UNKNOWN
     Route: 042
  3. REMICADE [Suspect]
     Active Substance: INFLIXIMAB
     Dosage: UNK
     Route: 042
  4. REMICADE [Suspect]
     Active Substance: INFLIXIMAB
     Dosage: UNKNOWN
     Route: 065
  5. REMICADE [Suspect]
     Active Substance: INFLIXIMAB
     Dosage: UNK
     Route: 042
  6. REMICADE [Suspect]
     Active Substance: INFLIXIMAB
     Dosage: UNK, OTHER
     Route: 065
  7. REMICADE [Suspect]
     Active Substance: INFLIXIMAB
     Dosage: UNK
     Route: 065
  8. REMICADE [Suspect]
     Active Substance: INFLIXIMAB
     Dosage: UNK, OTHER
     Route: 050
  9. REMICADE [Suspect]
     Active Substance: INFLIXIMAB
     Dosage: UNK, OTHER
     Route: 065
  10. REMICADE [Suspect]
     Active Substance: INFLIXIMAB
     Dosage: UNK
     Route: 050
  11. REMICADE [Suspect]
     Active Substance: INFLIXIMAB
     Dosage: UNK
     Route: 065
  12. REMICADE [Suspect]
     Active Substance: INFLIXIMAB
     Dosage: UNK
     Route: 042
  13. REMICADE [Suspect]
     Active Substance: INFLIXIMAB
     Dosage: UNK
     Route: 065
  14. REMICADE [Suspect]
     Active Substance: INFLIXIMAB
     Dosage: UNK
     Route: 065
  15. REMICADE [Suspect]
     Active Substance: INFLIXIMAB
     Dosage: UNK
     Route: 065
  16. REMICADE [Suspect]
     Active Substance: INFLIXIMAB
     Dosage: UNK
     Route: 065
  17. REMICADE [Suspect]
     Active Substance: INFLIXIMAB
     Dosage: UNK
     Route: 065
  18. REMICADE [Suspect]
     Active Substance: INFLIXIMAB
     Dosage: UNK
     Route: 065
  19. REMICADE [Suspect]
     Active Substance: INFLIXIMAB
     Dosage: UNK, OTHER
     Route: 042
  20. REMICADE [Suspect]
     Active Substance: INFLIXIMAB
     Dosage: UNK, OTHER
     Route: 042
  21. REMICADE [Suspect]
     Active Substance: INFLIXIMAB
     Dosage: UNK, OTHER
     Route: 042
  22. REMICADE [Suspect]
     Active Substance: INFLIXIMAB
     Dosage: UNK, OTHER
     Route: 042
  23. REMICADE [Suspect]
     Active Substance: INFLIXIMAB
     Dosage: UNK
     Route: 065
  24. REMICADE [Suspect]
     Active Substance: INFLIXIMAB
     Dosage: UNK, OTHER
     Route: 042
  25. REMICADE [Suspect]
     Active Substance: INFLIXIMAB
     Dosage: UNK, OTHER
     Route: 050
  26. REMICADE [Suspect]
     Active Substance: INFLIXIMAB
     Dosage: UNK, OTHER
     Route: 065
  27. REMICADE [Suspect]
     Active Substance: INFLIXIMAB
     Dosage: UNKNOWN
     Route: 042
  28. VEDOLIZUMAB [Suspect]
     Active Substance: VEDOLIZUMAB
     Indication: Crohn^s disease
     Dosage: SOLUTION FOR INJECTION
     Route: 065
  29. VEDOLIZUMAB [Suspect]
     Active Substance: VEDOLIZUMAB
     Indication: Product used for unknown indication
     Dosage: SOLUTION FOR INJECTION
     Route: 065
  30. VEDOLIZUMAB [Suspect]
     Active Substance: VEDOLIZUMAB
     Dosage: SOLUTION FOR INJECTION
     Route: 065
  31. VEDOLIZUMAB [Suspect]
     Active Substance: VEDOLIZUMAB
     Dosage: SOLUTION FOR INJECTION
     Route: 065
  32. VEDOLIZUMAB [Suspect]
     Active Substance: VEDOLIZUMAB
     Dosage: SOLUTION FOR INJECTION
     Route: 065
  33. VEDOLIZUMAB [Suspect]
     Active Substance: VEDOLIZUMAB
     Dosage: SOLUTION FOR INJECTION
     Route: 065
  34. VEDOLIZUMAB [Suspect]
     Active Substance: VEDOLIZUMAB
     Dosage: UNK OTHER
     Route: 065
  35. VEDOLIZUMAB [Suspect]
     Active Substance: VEDOLIZUMAB
     Dosage: UNK OTHER
     Route: 065
  36. VEDOLIZUMAB [Suspect]
     Active Substance: VEDOLIZUMAB
     Dosage: UNK OTHER
     Route: 065
  37. VEDOLIZUMAB [Suspect]
     Active Substance: VEDOLIZUMAB
     Dosage: SOLUTION FOR INJECTION
     Route: 065
  38. VEDOLIZUMAB [Suspect]
     Active Substance: VEDOLIZUMAB
     Dosage: SOLUTION FOR INJECTION
     Route: 065
  39. VEDOLIZUMAB [Suspect]
     Active Substance: VEDOLIZUMAB
     Dosage: SOLUTION FOR INJECTION
     Route: 065
  40. VEDOLIZUMAB [Suspect]
     Active Substance: VEDOLIZUMAB
     Dosage: SOLUTION FOR INJECTION
     Route: 065
  41. VEDOLIZUMAB [Suspect]
     Active Substance: VEDOLIZUMAB
     Dosage: SOLUTION FOR INJECTION
     Route: 065
  42. VEDOLIZUMAB [Suspect]
     Active Substance: VEDOLIZUMAB
     Dosage: SOLUTION FOR INJECTION
     Route: 065
  43. VEDOLIZUMAB [Suspect]
     Active Substance: VEDOLIZUMAB
     Dosage: SOLUTION FOR INJECTION
     Route: 065
  44. VEDOLIZUMAB [Suspect]
     Active Substance: VEDOLIZUMAB
     Dosage: SOLUTION FOR INJECTION
     Route: 065
  45. VEDOLIZUMAB [Suspect]
     Active Substance: VEDOLIZUMAB
     Dosage: SOLUTION FOR INJECTION
     Route: 065
  46. VEDOLIZUMAB [Suspect]
     Active Substance: VEDOLIZUMAB
     Dosage: SOLUTION FOR INJECTION
     Route: 065
  47. VEDOLIZUMAB [Suspect]
     Active Substance: VEDOLIZUMAB
     Dosage: SOLUTION FOR INJECTION
     Route: 065
  48. VEDOLIZUMAB [Suspect]
     Active Substance: VEDOLIZUMAB
     Dosage: SOLUTION FOR INJECTION
     Route: 065
  49. VEDOLIZUMAB [Suspect]
     Active Substance: VEDOLIZUMAB
     Dosage: SOLUTION FOR INJECTION
     Route: 065
  50. VEDOLIZUMAB [Suspect]
     Active Substance: VEDOLIZUMAB
     Dosage: SOLUTION FOR INJECTION
     Route: 065
  51. VEDOLIZUMAB [Suspect]
     Active Substance: VEDOLIZUMAB
     Dosage: SOLUTION FOR INJECTION
     Route: 065
  52. VEDOLIZUMAB [Suspect]
     Active Substance: VEDOLIZUMAB
     Dosage: SOLUTION FOR INJECTION
     Route: 065
  53. VEDOLIZUMAB [Suspect]
     Active Substance: VEDOLIZUMAB
     Dosage: SOLUTION FOR INJECTION
     Route: 065
  54. VEDOLIZUMAB [Suspect]
     Active Substance: VEDOLIZUMAB
     Dosage: SOLUTION FOR INJECTION
     Route: 065
  55. RIFAXIMIN [Suspect]
     Active Substance: RIFAXIMIN
     Indication: Product used for unknown indication
     Dosage: FILM COATED TABLET
     Route: 050
  56. RIFAXIMIN [Suspect]
     Active Substance: RIFAXIMIN
     Dosage: FILM COATED TABLET
     Route: 065
  57. RIFAXIMIN [Suspect]
     Active Substance: RIFAXIMIN
     Dosage: FILM COATED TABLET
     Route: 050
  58. RIFAXIMIN [Suspect]
     Active Substance: RIFAXIMIN
     Dosage: FILM COATED TABLET
     Route: 050
  59. RIFAXIMIN [Suspect]
     Active Substance: RIFAXIMIN
     Dosage: FILM COATED TABLET
     Route: 050
  60. RIFAXIMIN [Suspect]
     Active Substance: RIFAXIMIN
     Dosage: FILM COATED TABLET
     Route: 050
  61. RIFAXIMIN [Suspect]
     Active Substance: RIFAXIMIN
     Dosage: FILM COATED TABLET
     Route: 050
  62. RIFAXIMIN [Suspect]
     Active Substance: RIFAXIMIN
     Dosage: FILM COATED TABLET
     Route: 050
  63. RIFAXIMIN [Suspect]
     Active Substance: RIFAXIMIN
     Dosage: FILM COATED TABLET
     Route: 050
  64. RIFAXIMIN [Suspect]
     Active Substance: RIFAXIMIN
     Dosage: FILM COATED TABLET
     Route: 050
  65. RIFAXIMIN [Suspect]
     Active Substance: RIFAXIMIN
     Dosage: FILM COATED TABLET
     Route: 050
  66. RIFAXIMIN [Suspect]
     Active Substance: RIFAXIMIN
     Dosage: FILM COATED TABLET
     Route: 050
  67. RIFAXIMIN [Suspect]
     Active Substance: RIFAXIMIN
     Dosage: FILM COATED TABLET
     Route: 050
  68. RIFAXIMIN [Suspect]
     Active Substance: RIFAXIMIN
     Dosage: FILM COATED TABLET
     Route: 050
  69. RIFAXIMIN [Suspect]
     Active Substance: RIFAXIMIN
     Dosage: FILM COATED TABLET
     Route: 050
  70. RIFAXIMIN [Suspect]
     Active Substance: RIFAXIMIN
     Dosage: FILM COATED TABLET
     Route: 050
  71. RIFAXIMIN [Suspect]
     Active Substance: RIFAXIMIN
     Dosage: FILM COATED TABLET
     Route: 050
  72. RIFAXIMIN [Suspect]
     Active Substance: RIFAXIMIN
     Dosage: FILM COATED TABLET
     Route: 050
  73. RIFAXIMIN [Suspect]
     Active Substance: RIFAXIMIN
     Dosage: FILM COATED TABLET
     Route: 050
  74. METHOTREXATE SODIUM [Suspect]
     Active Substance: METHOTREXATE SODIUM
     Indication: Product used for unknown indication
     Dosage: UNK UNK, UNK
     Route: 050
     Dates: start: 20211112
  75. METHOTREXATE SODIUM [Suspect]
     Active Substance: METHOTREXATE SODIUM
     Dosage: UNK
     Route: 050
     Dates: start: 20211112
  76. METHOTREXATE SODIUM [Suspect]
     Active Substance: METHOTREXATE SODIUM
     Route: 050
  77. METHOTREXATE SODIUM [Suspect]
     Active Substance: METHOTREXATE SODIUM
     Route: 050
  78. METHOTREXATE SODIUM [Suspect]
     Active Substance: METHOTREXATE SODIUM
     Route: 050
  79. METHOTREXATE SODIUM [Suspect]
     Active Substance: METHOTREXATE SODIUM
     Route: 050
  80. METHOTREXATE SODIUM [Suspect]
     Active Substance: METHOTREXATE SODIUM
     Route: 050
  81. METHOTREXATE SODIUM [Suspect]
     Active Substance: METHOTREXATE SODIUM
     Route: 050
  82. METHOTREXATE SODIUM [Suspect]
     Active Substance: METHOTREXATE SODIUM
     Route: 050
  83. METHOTREXATE SODIUM [Suspect]
     Active Substance: METHOTREXATE SODIUM
     Route: 050
  84. METHOTREXATE SODIUM [Suspect]
     Active Substance: METHOTREXATE SODIUM
     Route: 050
  85. METHOTREXATE SODIUM [Suspect]
     Active Substance: METHOTREXATE SODIUM
     Route: 050
  86. METHOTREXATE SODIUM [Suspect]
     Active Substance: METHOTREXATE SODIUM
     Route: 050
  87. METHOTREXATE SODIUM [Suspect]
     Active Substance: METHOTREXATE SODIUM
     Route: 050
  88. METHOTREXATE SODIUM [Suspect]
     Active Substance: METHOTREXATE SODIUM
     Route: 050
  89. METHOTREXATE SODIUM [Suspect]
     Active Substance: METHOTREXATE SODIUM
     Route: 050
  90. METHOTREXATE SODIUM [Suspect]
     Active Substance: METHOTREXATE SODIUM
     Route: 050
  91. METHOTREXATE SODIUM [Suspect]
     Active Substance: METHOTREXATE SODIUM
     Route: 050
  92. METHOTREXATE SODIUM [Suspect]
     Active Substance: METHOTREXATE SODIUM
     Route: 050
  93. METHOTREXATE SODIUM [Suspect]
     Active Substance: METHOTREXATE SODIUM
     Route: 050
  94. METHOTREXATE SODIUM [Suspect]
     Active Substance: METHOTREXATE SODIUM
     Route: 050
  95. METHOTREXATE SODIUM [Suspect]
     Active Substance: METHOTREXATE SODIUM
     Route: 050
  96. METHOTREXATE SODIUM [Suspect]
     Active Substance: METHOTREXATE SODIUM
     Route: 050
  97. METHOTREXATE SODIUM [Suspect]
     Active Substance: METHOTREXATE SODIUM
     Route: 050
  98. METHOTREXATE SODIUM [Suspect]
     Active Substance: METHOTREXATE SODIUM
     Route: 050
  99. ADALIMUMAB [Suspect]
     Active Substance: ADALIMUMAB\ISOPROPYL ALCOHOL
     Indication: Crohn^s disease
     Dosage: UNK (1 UNIT, SINGLE DOSE PEN, UNIT EQUAL TO SURE CLICK)
     Route: 050
  100. ADALIMUMAB [Suspect]
     Active Substance: ADALIMUMAB\ISOPROPYL ALCOHOL
     Dosage: 1 UNIT?SOLUTION FOR INJECTION
     Route: 050
  101. ADALIMUMAB [Suspect]
     Active Substance: ADALIMUMAB\ISOPROPYL ALCOHOL
     Route: 050
  102. ADALIMUMAB [Suspect]
     Active Substance: ADALIMUMAB\ISOPROPYL ALCOHOL
     Route: 050
  103. ADALIMUMAB [Suspect]
     Active Substance: ADALIMUMAB\ISOPROPYL ALCOHOL
     Route: 050
  104. ADALIMUMAB [Suspect]
     Active Substance: ADALIMUMAB\ISOPROPYL ALCOHOL
     Route: 050
  105. ADALIMUMAB [Suspect]
     Active Substance: ADALIMUMAB\ISOPROPYL ALCOHOL
     Route: 050
  106. ADALIMUMAB [Suspect]
     Active Substance: ADALIMUMAB\ISOPROPYL ALCOHOL
     Route: 050
  107. ADALIMUMAB [Suspect]
     Active Substance: ADALIMUMAB\ISOPROPYL ALCOHOL
     Route: 050
  108. ADALIMUMAB [Suspect]
     Active Substance: ADALIMUMAB\ISOPROPYL ALCOHOL
     Route: 050
  109. ADALIMUMAB [Suspect]
     Active Substance: ADALIMUMAB\ISOPROPYL ALCOHOL
     Route: 050
  110. ADALIMUMAB [Suspect]
     Active Substance: ADALIMUMAB\ISOPROPYL ALCOHOL
     Dosage: UNK (1 UNIT, SINGLE DOSE PEN, UNIT EQUAL TO SURE CLICK)
     Route: 050
  111. ADALIMUMAB [Suspect]
     Active Substance: ADALIMUMAB\ISOPROPYL ALCOHOL
     Dosage: UNK (1 UNIT, SINGLE DOSE PEN, UNIT EQUAL TO SURE CLICK)
     Route: 050
  112. ADALIMUMAB [Suspect]
     Active Substance: ADALIMUMAB\ISOPROPYL ALCOHOL
     Dosage: UNK (1 UNIT, SINGLE DOSE PEN, UNIT EQUAL TO SURE CLICK)
     Route: 050
  113. ADALIMUMAB [Suspect]
     Active Substance: ADALIMUMAB\ISOPROPYL ALCOHOL
     Dosage: UNK (1 UNIT, SINGLE DOSE PEN, UNIT EQUAL TO SURE CLICK)
     Route: 050
  114. ADALIMUMAB [Suspect]
     Active Substance: ADALIMUMAB\ISOPROPYL ALCOHOL
     Dosage: UNK (1 UNIT, SINGLE DOSE PEN, UNIT EQUAL TO SURE CLICK)
     Route: 050
  115. ADALIMUMAB [Suspect]
     Active Substance: ADALIMUMAB\ISOPROPYL ALCOHOL
     Dosage: UNK (1 UNIT, SINGLE DOSE PEN, UNIT EQUAL TO SURE CLICK)
     Route: 050
  116. RIFAXIMIN [Suspect]
     Active Substance: RIFAXIMIN
     Indication: Product used for unknown indication
     Dosage: UNKNOWN
     Route: 050
  117. RIFAXIMIN [Suspect]
     Active Substance: RIFAXIMIN
     Dosage: UNK
     Route: 050
  118. RIFAXIMIN [Suspect]
     Active Substance: RIFAXIMIN
     Dosage: UNK
     Route: 050
  119. RIFAXIMIN [Suspect]
     Active Substance: RIFAXIMIN
     Dosage: UNK
     Route: 050
  120. RIFAXIMIN [Suspect]
     Active Substance: RIFAXIMIN
     Dosage: UNK
     Route: 050
  121. RIFAXIMIN [Suspect]
     Active Substance: RIFAXIMIN
     Dosage: UNK
     Route: 050
  122. RIFAXIMIN [Suspect]
     Active Substance: RIFAXIMIN
     Dosage: UNKNOWN
     Route: 050
  123. RIFAXIMIN [Suspect]
     Active Substance: RIFAXIMIN
     Dosage: UNKNOWN
     Route: 050
  124. RIFAXIMIN [Suspect]
     Active Substance: RIFAXIMIN
     Dosage: UNKNOWN
     Route: 050
  125. RIFAXIMIN [Suspect]
     Active Substance: RIFAXIMIN
     Dosage: UNKNOWN
     Route: 050
  126. RIFAXIMIN [Suspect]
     Active Substance: RIFAXIMIN
     Dosage: UNKNOWN
     Route: 050
  127. RIFAXIMIN [Suspect]
     Active Substance: RIFAXIMIN
     Dosage: UNKNOWN
     Route: 050
  128. RIFAXIMIN [Suspect]
     Active Substance: RIFAXIMIN
     Dosage: UNKNOWN
     Route: 050
  129. RIFAXIMIN [Suspect]
     Active Substance: RIFAXIMIN
     Dosage: UNKNOWN
     Route: 050
  130. RIFAXIMIN [Suspect]
     Active Substance: RIFAXIMIN
     Dosage: UNKNOWN
     Route: 050
  131. RIFAXIMIN [Suspect]
     Active Substance: RIFAXIMIN
     Dosage: UNKNOWN
     Route: 050
  132. RIFAXIMIN [Suspect]
     Active Substance: RIFAXIMIN
     Dosage: UNKNOWN
     Route: 050
  133. RIFAXIMIN [Suspect]
     Active Substance: RIFAXIMIN
     Dosage: UNKNOWN
     Route: 050
  134. RIFAXIMIN [Suspect]
     Active Substance: RIFAXIMIN
     Dosage: UNKNOWN
     Route: 050
  135. RIFAXIMIN [Suspect]
     Active Substance: RIFAXIMIN
     Dosage: UNKNOWN
     Route: 050
  136. RIFAXIMIN [Suspect]
     Active Substance: RIFAXIMIN
     Dosage: UNKNOWN
     Route: 050
  137. RIFAXIMIN [Suspect]
     Active Substance: RIFAXIMIN
     Dosage: UNKNOWN
     Route: 050
  138. RIFAXIMIN [Suspect]
     Active Substance: RIFAXIMIN
     Dosage: UNKNOWN
     Route: 050
  139. RIFAXIMIN [Suspect]
     Active Substance: RIFAXIMIN
     Dosage: UNKNOWN
     Route: 050
  140. RIFAXIMIN [Suspect]
     Active Substance: RIFAXIMIN
     Dosage: UNKNOWN
     Route: 050
  141. METHOTREXATE [Suspect]
     Active Substance: METHOTREXATE
     Indication: Product used for unknown indication
     Route: 050
  142. METHOTREXATE [Suspect]
     Active Substance: METHOTREXATE
     Route: 050
  143. METHOTREXATE [Suspect]
     Active Substance: METHOTREXATE
     Route: 050
  144. METHOTREXATE [Suspect]
     Active Substance: METHOTREXATE
     Route: 065
  145. METHOTREXATE [Suspect]
     Active Substance: METHOTREXATE
     Route: 065
  146. METHOTREXATE [Suspect]
     Active Substance: METHOTREXATE
     Route: 050
  147. METHOTREXATE [Suspect]
     Active Substance: METHOTREXATE
     Route: 050
  148. METHOTREXATE [Suspect]
     Active Substance: METHOTREXATE
     Route: 050
  149. METHOTREXATE [Suspect]
     Active Substance: METHOTREXATE
     Route: 050
  150. METHOTREXATE [Suspect]
     Active Substance: METHOTREXATE
     Route: 050
  151. METHOTREXATE [Suspect]
     Active Substance: METHOTREXATE
     Route: 050
  152. METHOTREXATE [Suspect]
     Active Substance: METHOTREXATE
     Route: 050
  153. METHOTREXATE [Suspect]
     Active Substance: METHOTREXATE
     Route: 065
  154. METHOTREXATE [Suspect]
     Active Substance: METHOTREXATE
     Route: 050
  155. METHOTREXATE [Suspect]
     Active Substance: METHOTREXATE
     Route: 050
  156. METHOTREXATE [Suspect]
     Active Substance: METHOTREXATE
     Route: 065
  157. METHOTREXATE [Suspect]
     Active Substance: METHOTREXATE
     Route: 065
  158. METHOTREXATE [Suspect]
     Active Substance: METHOTREXATE
     Route: 065
  159. METHOTREXATE [Suspect]
     Active Substance: METHOTREXATE
     Route: 050
  160. METHOTREXATE [Suspect]
     Active Substance: METHOTREXATE
     Route: 065
  161. METHOTREXATE [Suspect]
     Active Substance: METHOTREXATE
     Route: 065
  162. METHOTREXATE [Suspect]
     Active Substance: METHOTREXATE
     Route: 050
  163. METHOTREXATE [Suspect]
     Active Substance: METHOTREXATE
     Route: 050
  164. METHOTREXATE [Suspect]
     Active Substance: METHOTREXATE
     Route: 050
  165. METHOTREXATE [Suspect]
     Active Substance: METHOTREXATE
     Route: 050
  166. METHOTREXATE [Suspect]
     Active Substance: METHOTREXATE
     Route: 050
  167. METHOTREXATE [Suspect]
     Active Substance: METHOTREXATE
     Route: 065
  168. ENTYVIO [Suspect]
     Active Substance: VEDOLIZUMAB
     Indication: Crohn^s disease
     Dosage: UNKNOWN, UNK, SINGLE DOSE PEN
     Route: 050
  169. ENTYVIO [Suspect]
     Active Substance: VEDOLIZUMAB
     Indication: Crohn^s disease
     Dosage: UNKNOWN, UNK, SINGLE DOSE PEN
     Route: 050
  170. ENTYVIO [Suspect]
     Active Substance: VEDOLIZUMAB
     Dosage: UNKNOWN, UNK, SINGLE DOSE PEN
     Route: 050
  171. ENTYVIO [Suspect]
     Active Substance: VEDOLIZUMAB
     Dosage: UNKNOWN, UNK, SINGLE DOSE PEN
     Route: 050
  172. ENTYVIO [Suspect]
     Active Substance: VEDOLIZUMAB
     Dosage: UNKNOWN, UNK, SINGLE DOSE PEN
     Route: 050
  173. ENTYVIO [Suspect]
     Active Substance: VEDOLIZUMAB
     Dosage: UNKNOWN, UNK, SINGLE DOSE PEN
     Route: 050
  174. ENTYVIO [Suspect]
     Active Substance: VEDOLIZUMAB
     Dosage: UNKNOWN, UNK, SINGLE DOSE PEN
     Route: 050
  175. ENTYVIO [Suspect]
     Active Substance: VEDOLIZUMAB
     Dosage: UNKNOWN, UNK, SINGLE DOSE PEN
     Route: 050
  176. ENTYVIO [Suspect]
     Active Substance: VEDOLIZUMAB
     Dosage: UNKNOWN, UNK, SINGLE DOSE PEN
     Route: 050
  177. ENTYVIO [Suspect]
     Active Substance: VEDOLIZUMAB
     Dosage: UNKNOWN, UNK, SINGLE DOSE PEN
     Route: 050
  178. ENTYVIO [Suspect]
     Active Substance: VEDOLIZUMAB
     Dosage: UNKNOWN, UNK, SINGLE DOSE PEN
     Route: 050
  179. ENTYVIO [Suspect]
     Active Substance: VEDOLIZUMAB
     Dosage: UNKNOWN, UNK, SINGLE DOSE PEN
     Route: 050
  180. ENTYVIO [Suspect]
     Active Substance: VEDOLIZUMAB
     Dosage: UNKNOWN, UNK, SINGLE DOSE PEN
     Route: 050
  181. ENTYVIO [Suspect]
     Active Substance: VEDOLIZUMAB
     Dosage: UNKNOWN, UNK, SINGLE DOSE PEN
     Route: 050
  182. ENTYVIO [Suspect]
     Active Substance: VEDOLIZUMAB
     Dosage: UNKNOWN, UNK, SINGLE DOSE PEN
     Route: 050
  183. ENTYVIO [Suspect]
     Active Substance: VEDOLIZUMAB
     Dosage: UNKNOWN, UNK, SINGLE DOSE PEN
     Route: 050
  184. ENTYVIO [Suspect]
     Active Substance: VEDOLIZUMAB
     Dosage: UNKNOWN, UNK, SINGLE DOSE PEN
     Route: 050
  185. ENTYVIO [Suspect]
     Active Substance: VEDOLIZUMAB
     Dosage: UNKNOWN, UNK, SINGLE DOSE PEN
     Route: 050
  186. ENTYVIO [Suspect]
     Active Substance: VEDOLIZUMAB
     Dosage: UNKNOWN, UNK, SINGLE DOSE PEN
     Route: 050
  187. ENTYVIO [Suspect]
     Active Substance: VEDOLIZUMAB
     Dosage: UNKNOWN, UNK, SINGLE DOSE PEN
     Route: 050
  188. ENTYVIO [Suspect]
     Active Substance: VEDOLIZUMAB
     Dosage: UNKNOWN, UNK, SINGLE DOSE PEN
     Route: 050
  189. ENTYVIO [Suspect]
     Active Substance: VEDOLIZUMAB
     Dosage: UNKNOWN, UNK, SINGLE DOSE PEN
     Route: 050
  190. ENTYVIO [Suspect]
     Active Substance: VEDOLIZUMAB
     Dosage: UNKNOWN, UNK, SINGLE DOSE PEN
     Route: 050
  191. ENTYVIO [Suspect]
     Active Substance: VEDOLIZUMAB
     Dosage: UNKNOWN, UNK, SINGLE DOSE PEN
     Route: 050
  192. INFLIXIMAB [Suspect]
     Active Substance: INFLIXIMAB
     Indication: Crohn^s disease
     Dosage: UNK
     Route: 042
  193. INFLIXIMAB [Suspect]
     Active Substance: INFLIXIMAB
     Dosage: UNK
     Route: 042
  194. INFLIXIMAB [Suspect]
     Active Substance: INFLIXIMAB
     Dosage: UNK
     Route: 042
  195. INFLIXIMAB [Suspect]
     Active Substance: INFLIXIMAB
     Dosage: UNK
     Route: 042
  196. INFLIXIMAB [Suspect]
     Active Substance: INFLIXIMAB
     Dosage: UNK
     Route: 042
  197. INFLIXIMAB [Suspect]
     Active Substance: INFLIXIMAB
     Dosage: UNK
     Route: 042
  198. INFLIXIMAB [Suspect]
     Active Substance: INFLIXIMAB
     Dosage: UNK
     Route: 042
  199. INFLIXIMAB [Suspect]
     Active Substance: INFLIXIMAB
     Dosage: UNK
     Route: 042
  200. INFLIXIMAB [Suspect]
     Active Substance: INFLIXIMAB
     Dosage: UNK
     Route: 042
  201. INFLIXIMAB [Suspect]
     Active Substance: INFLIXIMAB
     Dosage: UNK
     Route: 042
  202. INFLIXIMAB [Suspect]
     Active Substance: INFLIXIMAB
     Dosage: UNK
     Route: 042
  203. INFLIXIMAB [Suspect]
     Active Substance: INFLIXIMAB
     Dosage: UNK
     Route: 042
  204. INFLIXIMAB [Suspect]
     Active Substance: INFLIXIMAB
     Dosage: UNK
     Route: 042
  205. INFLIXIMAB [Suspect]
     Active Substance: INFLIXIMAB
     Dosage: UNK
     Route: 042
  206. INFLIXIMAB [Suspect]
     Active Substance: INFLIXIMAB
     Dosage: UNK
     Route: 042
  207. INFLIXIMAB [Suspect]
     Active Substance: INFLIXIMAB
     Dosage: UNK
     Route: 042
  208. USTEKINUMAB [Concomitant]
     Active Substance: USTEKINUMAB
     Indication: Product used for unknown indication
     Route: 050
     Dates: start: 20211112, end: 2022
  209. USTEKINUMAB [Concomitant]
     Active Substance: USTEKINUMAB
     Route: 065
     Dates: start: 20211112, end: 2022
  210. HYRIMOZ [Concomitant]
     Active Substance: ADALIMUMAB-ADAZ
     Indication: Product used for unknown indication
     Dosage: UNK, SENSO-READ PEN
     Route: 050
  211. HYRIMOZ [Concomitant]
     Active Substance: ADALIMUMAB-ADAZ
     Dosage: UNK, SENSO-READ PEN
     Route: 050

REACTIONS (17)
  - Small intestinal obstruction [Unknown]
  - Gastrointestinal bacterial overgrowth [Unknown]
  - Pneumonia [Unknown]
  - Impaired quality of life [Unknown]
  - Frequent bowel movements [Unknown]
  - Nerve injury [Unknown]
  - Pancreatitis [Unknown]
  - Incontinence [Unknown]
  - Crohn^s disease [Unknown]
  - Drug specific antibody [Unknown]
  - Drug ineffective [Unknown]
  - Quality of life decreased [Unknown]
  - Impaired quality of life [Unknown]
  - Quality of life decreased [Unknown]
  - Drug ineffective [Unknown]
  - Small intestinal obstruction [Unknown]
  - Crohn^s disease [Unknown]

NARRATIVE: CASE EVENT DATE: 20220101
